FAERS Safety Report 21707872 (Version 1)
Quarter: 2022Q4

REPORT INFORMATION
  Report Type: Spontaneous
  Country: US (occurrence: US)
  Receive Date: 20221209
  Receipt Date: 20221209
  Transmission Date: 20230113
  Serious: Yes (Death, Other)
  Sender: FDA-Public Use
  Company Number: US-JAZZ-2022-US-035757

PATIENT
  Age: 68 Year
  Sex: Male
  Weight: 53.061 kg

DRUGS (5)
  1. ZEPZELCA [Suspect]
     Active Substance: LURBINECTEDIN
     Indication: Lung neoplasm malignant
     Dosage: 5 MILLIGRAM, EVERY THREE WEEKS
     Route: 042
     Dates: start: 20220428, end: 20221003
  2. ZEPZELCA [Suspect]
     Active Substance: LURBINECTEDIN
     Indication: Small cell lung cancer metastatic
     Dosage: 10 MILLIGRAM, TID
  3. ALUMINUM HYDROXIDE\MAGNESIUM TRISILICATE [Suspect]
     Active Substance: ALUMINUM HYDROXIDE\MAGNESIUM TRISILICATE
     Indication: Product used for unknown indication
     Dosage: UNK
     Route: 042
     Dates: start: 20220428, end: 20221003
  4. DEXAMETHASONE [Suspect]
     Active Substance: DEXAMETHASONE
     Indication: Product used for unknown indication
     Dosage: UNK
     Dates: start: 20220428, end: 20221003
  5. EMEND [Suspect]
     Active Substance: APREPITANT
     Indication: Product used for unknown indication
     Dosage: UNK
     Dates: start: 20220428, end: 20221003

REACTIONS (7)
  - Death [Fatal]
  - Administration site extravasation [Unknown]
  - Skin weeping [Unknown]
  - Peripheral swelling [Unknown]
  - Injection site erythema [Unknown]
  - Injection site vesicles [Unknown]
  - Catheter site related reaction [Unknown]

NARRATIVE: CASE EVENT DATE: 20221003
